FAERS Safety Report 4591042-4 (Version None)
Quarter: 2005Q1

REPORT INFORMATION
  Report Type: 
  Country: None (occurrence: None)
  Receive Date: 20050222
  Receipt Date: 20050222
  Transmission Date: 20050727
  Serious: Yes (Hospitalization)
  Sender: FDA-Public Use
  Company Number: None

PATIENT
  Age: 56 Year
  Sex: Male
  Weight: 60.782 kg

DRUGS (7)
  1. DILANTIN [Suspect]
     Indication: CONVULSION
     Dosage: 450 MG DAILY DIVIDED
  2. PRILOSEC OTC [Suspect]
     Indication: GASTROOESOPHAGEAL REFLUX DISEASE
     Dosage: 20 MG DAILY
     Dates: start: 20030801, end: 20040101
  3. MULTI-VITAMIN [Concomitant]
  4. FOLIC ACID [Concomitant]
  5. DILANTIN [Concomitant]
  6. TOPAMAX [Concomitant]
  7. LORAZEPAM [Concomitant]

REACTIONS (6)
  - CARDIAC FAILURE CONGESTIVE [None]
  - CHEST PAIN [None]
  - DRUG INTERACTION [None]
  - DRUG LEVEL INCREASED [None]
  - HALLUCINATION [None]
  - PITTING OEDEMA [None]
